FAERS Safety Report 20468471 (Version 1)
Quarter: 2022Q1

REPORT INFORMATION
  Report Type: Spontaneous
  Country: US (occurrence: None)
  Receive Date: 20220212
  Receipt Date: 20220212
  Transmission Date: 20220424
  Serious: Yes (Hospitalization)
  Sender: FDA-Public Use
  Company Number: None

PATIENT
  Age: 42 Year
  Sex: Female
  Weight: 56.7 kg

DRUGS (1)
  1. NALTREXONE HYDROCHLORIDE [Suspect]
     Active Substance: NALTREXONE HYDROCHLORIDE
     Indication: Alcohol abuse
     Dosage: FREQUENCY : DAILY;?
     Route: 048
     Dates: start: 20220204, end: 20220204

REACTIONS (7)
  - Tinnitus [None]
  - Gastrointestinal disorder [None]
  - Cold sweat [None]
  - Psychomotor hyperactivity [None]
  - Grunting [None]
  - Anger [None]
  - Suspected product quality issue [None]

NARRATIVE: CASE EVENT DATE: 20220204
